FAERS Safety Report 7605281-9 (Version None)
Quarter: 2011Q3

REPORT INFORMATION
  Report Type: 
  Country: None (occurrence: None)
  Receive Date: 20110705
  Receipt Date: 20110621
  Transmission Date: 20111222
  Serious: Yes (Hospitalization)
  Sender: FDA-Public Use
  Company Number: FK201101252

PATIENT
  Age: 71 Year
  Sex: Female

DRUGS (2)
  1. METHOTREXATE [Suspect]
     Indication: RHEUMATOID ARTHRITIS
     Dosage: 10 MG, 1 IN 1 WK
  2. ADALIMUMAB (ADALIMUMAB) (ADALIMUMAB) [Suspect]
     Indication: RHEUMATOID ARTHRITIS
     Dosage: 40 MG, EVERY OTHER WEEK

REACTIONS (8)
  - FATIGUE [None]
  - RASH PRURITIC [None]
  - WEIGHT DECREASED [None]
  - PYREXIA [None]
  - VISCERAL LEISHMANIASIS [None]
  - HYPERGAMMAGLOBULINAEMIA [None]
  - PANCYTOPENIA [None]
  - LETHARGY [None]
